FAERS Safety Report 5444170-5 (Version None)
Quarter: 2007Q3

REPORT INFORMATION
  Report Type: 
  Country: None (occurrence: None)
  Receive Date: 20070904
  Receipt Date: 20070904
  Transmission Date: 20080115
  Serious: Yes (Other)
  Sender: FDA-Public Use
  Company Number: None

PATIENT
  Age: 60 Year
  Sex: Female
  Weight: 68.4932 kg

DRUGS (4)
  1. METOPROLOL TARTRATE [Suspect]
     Indication: CORONARY ARTERY DISEASE
     Dosage: ONCE BID, PO
     Route: 048
     Dates: start: 20070503
  2. METOPROLOL TARTRATE [Suspect]
     Indication: HYPERTENSION
     Dosage: ONCE BID, PO
     Route: 048
     Dates: start: 20070503
  3. METOPROLOL TARTRATE [Suspect]
     Indication: CORONARY ARTERY DISEASE
     Dosage: ONCE BID, PO
     Route: 048
     Dates: start: 20070802
  4. METOPROLOL TARTRATE [Suspect]
     Indication: HYPERTENSION
     Dosage: ONCE BID, PO
     Route: 048
     Dates: start: 20070802

REACTIONS (5)
  - DYSPNOEA [None]
  - FATIGUE [None]
  - HEART RATE INCREASED [None]
  - MIDDLE INSOMNIA [None]
  - PALPITATIONS [None]
